FAERS Safety Report 7471123-8 (Version None)
Quarter: 2011Q2

REPORT INFORMATION
  Report Type: 
  Country: None (occurrence: None)
  Receive Date: 20110510
  Receipt Date: 20110422
  Transmission Date: 20111010
  Serious: No
  Sender: FDA-Public Use
  Company Number: US-B.I. PHARMACEUTICALS,INC./RIDGEFIELD-2011-BP-06319BP

PATIENT
  Sex: Male

DRUGS (9)
  1. PRADAXA [Suspect]
     Indication: ATRIAL FIBRILLATION
     Dosage: 300 MG
     Route: 048
     Dates: start: 20110227
  2. ZOCOR [Concomitant]
     Indication: BLOOD CHOLESTEROL INCREASED
     Dosage: 40 MG
  3. TOPROLOL [Concomitant]
     Indication: HYPERTENSION
     Dosage: 20 MG
  4. DIOVAN [Concomitant]
     Indication: HYPERTENSION
     Dosage: 40 MG
  5. LOVAZA [Concomitant]
     Indication: PROPHYLAXIS
     Dosage: 4 MG
  6. AVODART [Concomitant]
     Indication: PROSTATOMEGALY
     Dosage: 5 MG
  7. FLOMAX [Concomitant]
     Indication: PROSTATOMEGALY
     Dosage: 4 MG
     Dates: start: 20101101
  8. TIKOSYN [Concomitant]
     Indication: ATRIAL FIBRILLATION
     Dosage: 125 MG
  9. SYNTHROID [Concomitant]
     Indication: HYPOTHYROIDISM
     Dosage: 200 MG

REACTIONS (11)
  - WEIGHT INCREASED [None]
  - CHEST PAIN [None]
  - VISUAL IMPAIRMENT [None]
  - AGITATION [None]
  - ASTHENIA [None]
  - HEART RATE IRREGULAR [None]
  - HEADACHE [None]
  - ABDOMINAL PAIN UPPER [None]
  - DIARRHOEA [None]
  - HEART RATE INCREASED [None]
  - ABDOMINAL DISTENSION [None]
